FAERS Safety Report 23260558 (Version 1)
Quarter: 2023Q4

REPORT INFORMATION
  Report Type: Spontaneous
  Country: NL (occurrence: NL)
  Receive Date: 20231205
  Receipt Date: 20231205
  Transmission Date: 20240110
  Serious: Yes (Congenital Anomaly, Other)
  Sender: FDA-Public Use
  Company Number: None

PATIENT

DRUGS (2)
  1. BUPROPION [Suspect]
     Active Substance: BUPROPION
     Indication: Depressed mood
     Dosage: 1 DF, QD (1 PIECE ONCE PER DAY)
     Route: 064
     Dates: start: 20221213
  2. HUMAN IMMUNOGLOBULIN G\HYALURONIDASE RECOMBINANT HUMAN [Suspect]
     Active Substance: HUMAN IMMUNOGLOBULIN G\HYALURONIDASE (HUMAN RECOMBINANT)
     Indication: Selective polysaccharide antibody deficiency
     Dosage: 20 G (20G ONCE EVERY 4 WEEKS)
     Route: 064

REACTIONS (2)
  - Limb hypoplasia congenital [Unknown]
  - Foetal exposure during pregnancy [Unknown]
